FAERS Safety Report 22592231 (Version 1)
Quarter: 2023Q2

REPORT INFORMATION
  Report Type: Spontaneous
  Country: GB (occurrence: None)
  Receive Date: 20230613
  Receipt Date: 20230613
  Transmission Date: 20230722
  Serious: Yes (Other)
  Sender: FDA-Public Use
  Company Number: None

PATIENT
  Age: 42 Year
  Sex: Female

DRUGS (9)
  1. METHOTREXATE [Suspect]
     Active Substance: METHOTREXATE
     Indication: Rheumatoid arthritis
  2. CALCIUM\CHOLECALCIFEROL [Concomitant]
     Active Substance: CALCIUM\CHOLECALCIFEROL
  3. FOLIC ACID [Concomitant]
     Active Substance: FOLIC ACID
     Dosage: STRENGTH: 5MG
  4. POTASSIUM BICARBONATE\SODIUM ALGINATE [Concomitant]
     Active Substance: POTASSIUM BICARBONATE\SODIUM ALGINATE
     Dosage: AS NECESSARY
  5. OMEPRAZOLE [Concomitant]
     Active Substance: OMEPRAZOLE
     Dosage: STRENGTH: 20MG
  6. MESALAMINE [Concomitant]
     Active Substance: MESALAMINE
  7. OMEGA-3 ACIDS [Concomitant]
     Active Substance: OMEGA-3 FATTY ACIDS
  8. ACETAMINOPHEN [Concomitant]
     Active Substance: ACETAMINOPHEN
     Dosage: STRENGTH: 500MG
  9. PREDNISOLONE [Concomitant]
     Active Substance: PREDNISOLONE
     Dosage: WEANING REGIMEN

REACTIONS (1)
  - Bladder spasm [Not Recovered/Not Resolved]
